FAERS Safety Report 5139620-8 (Version None)
Quarter: 2006Q4

REPORT INFORMATION
  Report Type: 
  Country: None (occurrence: None)
  Receive Date: 20061024
  Receipt Date: 20061011
  Transmission Date: 20070319
  Serious: Yes (Death)
  Sender: FDA-Public Use
  Company Number: 2006113910

PATIENT
  Age: 92 Year
  Sex: Male

DRUGS (5)
  1. FELDENE [Suspect]
     Indication: PAIN
     Dosage: 1 UNIT (1 D), INTRAMUSCULAR
     Route: 030
     Dates: start: 20060707, end: 20060721
  2. IBUSTRIN (INDOBUFEN SODIUM) [Suspect]
     Dosage: 200 MG (200 MG, 1 D), ORAL
     Route: 048
     Dates: start: 20060101, end: 20060722
  3. FOSICOMBI (FOSINOPRIL SODIUM, HYDROCHLOROTHIAZIDE) [Concomitant]
  4. CRONIZAT (NIZATIDINE) [Concomitant]
  5. STUGERON (CINNARIZINE) [Concomitant]

REACTIONS (12)
  - AGITATION [None]
  - ATRIAL FIBRILLATION [None]
  - BILIARY COLIC [None]
  - DUODENAL ULCER PERFORATION [None]
  - DYSPNOEA [None]
  - GENERAL PHYSICAL HEALTH DETERIORATION [None]
  - HAEMODYNAMIC INSTABILITY [None]
  - LEUKOCYTOSIS [None]
  - OLIGURIA [None]
  - PERITONITIS [None]
  - PLEURAL DISORDER [None]
  - RENAL IMPAIRMENT [None]
